FAERS Safety Report 23538364 (Version 1)
Quarter: 2024Q1

REPORT INFORMATION
  Report Type: Spontaneous
  Country: GB (occurrence: GB)
  Receive Date: 20240219
  Receipt Date: 20240219
  Transmission Date: 20240409
  Serious: Yes (Life-Threatening, Other)
  Sender: FDA-Public Use
  Company Number: GB-TEVA-2005-CZ-00219

PATIENT
  Age: 27 Year
  Sex: Male

DRUGS (3)
  1. CODEINE PHOSPHATE [Suspect]
     Active Substance: CODEINE PHOSPHATE
     Indication: Product used for unknown indication
     Dosage: BP 30MG TABLETS
     Route: 048
  2. PAROXETINE [Suspect]
     Active Substance: PAROXETINE
     Indication: Product used for unknown indication
     Dosage: IVAX 20 MG, COMPRIM PELLICUL SCABLE
     Route: 065
     Dates: start: 199909, end: 200212
  3. IBUPROFEN [Suspect]
     Active Substance: IBUPROFEN
     Indication: Product used for unknown indication
     Dosage: TABLETS BP 400 MG
     Route: 048

REACTIONS (5)
  - Intentional product misuse [Unknown]
  - Aggression [Unknown]
  - Social anxiety disorder [Unknown]
  - Sexual dysfunction [Unknown]
  - Suicidal ideation [Unknown]

NARRATIVE: CASE EVENT DATE: 20020701
